FAERS Safety Report 24946155 (Version 1)
Quarter: 2025Q1

REPORT INFORMATION
  Report Type: Spontaneous
  Country: IT (occurrence: IT)
  Receive Date: 20250210
  Receipt Date: 20250210
  Transmission Date: 20250408
  Serious: Yes (Other)
  Sender: ALKEM
  Company Number: None

PATIENT
  Age: 68 Year
  Sex: Female

DRUGS (12)
  1. LINEZOLID [Suspect]
     Active Substance: LINEZOLID
     Indication: Arthritis infective
     Route: 048
     Dates: start: 20211111, end: 20220506
  2. LINEZOLID [Suspect]
     Active Substance: LINEZOLID
     Indication: Mycobacterium abscessus infection
     Dosage: 600 MILLIGRAM, BID
     Route: 048
     Dates: start: 20211015
  3. VANCOMYCIN [Concomitant]
     Active Substance: VANCOMYCIN
     Indication: Antibiotic therapy
     Route: 065
  4. LEVOFLOXACIN [Concomitant]
     Active Substance: LEVOFLOXACIN
     Indication: Antibiotic therapy
     Route: 065
  5. DAPTOMYCIN [Concomitant]
     Active Substance: DAPTOMYCIN
     Indication: Antibiotic therapy
     Route: 065
  6. GENTAMICIN [Concomitant]
     Active Substance: GENTAMICIN
     Indication: Antibiotic therapy
     Route: 065
  7. MEROPENEM [Concomitant]
     Active Substance: MEROPENEM
     Indication: Antibiotic therapy
     Route: 065
  8. AMIKACIN [Concomitant]
     Active Substance: AMIKACIN
     Indication: Mycobacterium abscessus infection
     Route: 048
     Dates: start: 20211111, end: 20220506
  9. AMIKACIN [Concomitant]
     Active Substance: AMIKACIN
     Indication: Arthritis infective
     Dosage: 750 MILLIGRAM, QD
     Route: 048
     Dates: start: 20211015
  10. AMIKACIN [Concomitant]
     Active Substance: AMIKACIN
     Dosage: 4500 MILLIGRAM, ONCE WEEKLY
     Route: 048
     Dates: start: 20211216, end: 20220506
  11. CLOFAZIMINE [Concomitant]
     Active Substance: CLOFAZIMINE
     Indication: Mycobacterium abscessus infection
     Dosage: 100 MILLIGRAM, QD
     Route: 065
     Dates: start: 20211216, end: 20220506
  12. CLOFAZIMINE [Concomitant]
     Active Substance: CLOFAZIMINE
     Indication: Arthritis infective

REACTIONS (1)
  - Neuropathy peripheral [Recovered/Resolved]
